FAERS Safety Report 9333213 (Version 1)
Quarter: 2013Q2

REPORT INFORMATION
  Report Type: Spontaneous
  Country: US (occurrence: US)
  Receive Date: 20130606
  Receipt Date: 20130606
  Transmission Date: 20140414
  Serious: Yes (Hospitalization)
  Sender: FDA-Public Use
  Company Number: US-TEVA-410136USA

PATIENT
  Age: 73 Year
  Sex: Female

DRUGS (1)
  1. WARFARIN [Suspect]
     Route: 065

REACTIONS (2)
  - Tongue haematoma [Recovering/Resolving]
  - Upper airway obstruction [Recovering/Resolving]
